FAERS Safety Report 23749897 (Version 2)
Quarter: 2024Q2

REPORT INFORMATION
  Report Type: Spontaneous
  Country: JP (occurrence: JP)
  Receive Date: 20240417
  Receipt Date: 20240528
  Transmission Date: 20240716
  Serious: Yes (Hospitalization, Other)
  Sender: FDA-Public Use
  Company Number: JP-BRISTOL-MYERS SQUIBB COMPANY-2024-024623

PATIENT

DRUGS (2)
  1. YERVOY [Suspect]
     Active Substance: IPILIMUMAB
     Indication: Oesophageal carcinoma
     Route: 041
  2. OPDIVO [Suspect]
     Active Substance: NIVOLUMAB
     Indication: Oesophageal carcinoma
     Route: 041

REACTIONS (5)
  - Pruritus [Not Recovered/Not Resolved]
  - Wound haemorrhage [Unknown]
  - Immune-mediated adrenal insufficiency [Not Recovered/Not Resolved]
  - Pneumonia [Unknown]
  - Cholangitis sclerosing [Unknown]
